FAERS Safety Report 19591406 (Version 1)
Quarter: 2021Q3

REPORT INFORMATION
  Report Type: Report from Study
  Country: PH (occurrence: PH)
  Receive Date: 20210721
  Receipt Date: 20210721
  Transmission Date: 20211014
  Serious: Yes (Other)
  Sender: FDA-Public Use
  Company Number: PH-OTSUKA-2019_019750

PATIENT
  Age: 16 Year
  Sex: Male

DRUGS (2)
  1. ARIPIPRAZOLE. [Suspect]
     Active Substance: ARIPIPRAZOLE
     Indication: HALLUCINATION
  2. ARIPIPRAZOLE. [Suspect]
     Active Substance: ARIPIPRAZOLE
     Indication: DISTURBANCE IN ATTENTION
     Dosage: 5 MG HALF TABLET
     Route: 065
     Dates: start: 20190101, end: 201904

REACTIONS (4)
  - Wrong technique in product usage process [Unknown]
  - Therapy cessation [Unknown]
  - Anger [Recovered/Resolved]
  - Product use in unapproved indication [Unknown]

NARRATIVE: CASE EVENT DATE: 20190101
